FAERS Safety Report 16737083 (Version 3)
Quarter: 2020Q1

REPORT INFORMATION
  Report Type: Spontaneous
  Country: FR (occurrence: FR)
  Receive Date: 20190823
  Receipt Date: 20200227
  Transmission Date: 20200409
  Serious: Yes (Life-Threatening, Hospitalization, Other)
  Sender: FDA-Public Use
  Company Number: PHHY2019FR195485

PATIENT
  Age: 14 Year
  Sex: Female
  Weight: 74 kg

DRUGS (21)
  1. MOPRAL [Interacting]
     Active Substance: OMEPRAZOLE
     Indication: VOMITING
  2. AMPHOTERICINE B, LIPOSOME [Concomitant]
     Active Substance: AMPHOTERICIN B
     Indication: ANTIFUNGAL TREATMENT
     Dosage: UNK
     Route: 065
     Dates: start: 20050903, end: 20050917
  3. MYCOSTATINE [Concomitant]
     Active Substance: NYSTATIN
     Indication: PRODUCT USED FOR UNKNOWN INDICATION
     Dosage: DUR. OF TREATMENT TO EVENT: 13 DAY
     Route: 048
     Dates: start: 20050917, end: 20050929
  4. ATARAX [Concomitant]
     Active Substance: HYDROXYZINE HYDROCHLORIDE
     Indication: NERVOUSNESS
     Dosage: 30 MG, TID
     Route: 042
     Dates: start: 200508
  5. PRIMPERAN [Concomitant]
     Active Substance: METOCLOPRAMIDE HYDROCHLORIDE
     Indication: NAUSEA
     Dosage: 1 DF, TID
     Route: 042
     Dates: start: 200508
  6. SILOMAT [Concomitant]
     Indication: PRODUCT USED FOR UNKNOWN INDICATION
     Dosage: UNK
  7. TARGOCID [Concomitant]
     Active Substance: TEICOPLANIN
     Indication: APLASIA
     Dosage: 900 MG, QD
     Route: 042
     Dates: start: 200509
  8. AMBISOME [Concomitant]
     Active Substance: AMPHOTERICIN B
     Indication: ASPERGILLUS INFECTION
     Dosage: UNK
     Route: 042
     Dates: start: 20050911, end: 20050926
  9. CASPOFUNGIN ACETATE. [Concomitant]
     Active Substance: CASPOFUNGIN ACETATE
     Indication: FUNGAL INFECTION
     Dosage: UNK
     Route: 042
  10. PIPERACILLIN AND TAZOBACTAM [Concomitant]
     Active Substance: PIPERACILLIN SODIUM\TAZOBACTAM SODIUM
     Indication: FEBRILE NEUTROPENIA
     Dosage: UNK
     Route: 042
  11. POLARAMINE [Concomitant]
     Active Substance: DEXCHLORPHENIRAMINE MALEATE
     Indication: PRURITUS
     Dosage: 1 DF, TID (DURATION: CONTINUING)
     Route: 042
     Dates: start: 200508
  12. VANCOMYCIN [Concomitant]
     Active Substance: VANCOMYCIN
     Indication: FEBRILE NEUTROPENIA
     Dosage: UNK
     Route: 042
  13. ONDANSETRON [Concomitant]
     Active Substance: ONDANSETRON
     Indication: NAUSEA
     Dosage: 8 MG, BID
     Route: 065
     Dates: start: 200508
  14. FORTUM [Concomitant]
     Active Substance: CEFTAZIDIME
     Indication: PYREXIA
     Dosage: UNK
     Route: 065
  15. NOXAFIL [Interacting]
     Active Substance: POSACONAZOLE
     Indication: MUCORMYCOSIS
     Dosage: 200 MG, ONCE/SINGLE
     Route: 048
     Dates: start: 20050930, end: 20050930
  16. MOPRAL [Interacting]
     Active Substance: OMEPRAZOLE
     Indication: NAUSEA
     Dosage: UNK
     Route: 048
     Dates: start: 20050917
  17. LEUPRORELIN ACETATE [Concomitant]
     Active Substance: LEUPROLIDE ACETATE
     Indication: PRODUCT USED FOR UNKNOWN INDICATION
     Dosage: DOSE: EVERY 3 MONTHS DURTION
     Route: 042
  18. VORICONAZOLE. [Suspect]
     Active Substance: VORICONAZOLE
     Indication: ASPERGILLUS INFECTION
     Dosage: 300 MG, BID
     Route: 042
     Dates: start: 20050915, end: 20050929
  19. CASPOFUNGIN [Concomitant]
     Active Substance: CASPOFUNGIN
     Indication: MUCORMYCOSIS
     Dosage: UNK
     Route: 042
     Dates: start: 20050917
  20. CASPOFUNGIN ACETATE. [Concomitant]
     Active Substance: CASPOFUNGIN ACETATE
     Dosage: UNK
     Route: 042
     Dates: start: 20050917
  21. CASPOFUNGIN ACETATE. [Concomitant]
     Active Substance: CASPOFUNGIN ACETATE
     Dosage: DUR. OF TREATMENT TO EVENT: 9 DAY
     Route: 042
     Dates: start: 20050921

REACTIONS (9)
  - Cardiac arrest [Recovered/Resolved]
  - Torsade de pointes [Recovered/Resolved]
  - Hypomagnesaemia [Unknown]
  - Renal failure [Unknown]
  - Ventricular fibrillation [Recovered/Resolved]
  - Drug interaction [Recovered/Resolved]
  - Thrombocytopenia [Unknown]
  - Electrocardiogram QT prolonged [Not Recovered/Not Resolved]
  - Drug level increased [Unknown]

NARRATIVE: CASE EVENT DATE: 20050930
